FAERS Safety Report 9846164 (Version 2)
Quarter: 2014Q1

REPORT INFORMATION
  Report Type: Report from Study
  Country: AU (occurrence: AU)
  Receive Date: 20140127
  Receipt Date: 20140127
  Transmission Date: 20141002
  Serious: Yes (Other)
  Sender: FDA-Public Use
  Company Number: PHHY2013AU150007

PATIENT
  Sex: Female
  Weight: 55 kg

DRUGS (5)
  1. SANDOSTATIN LAR [Suspect]
     Indication: ACROMEGALY
     Dosage: 30 MG, UNK
     Route: 030
  2. NORVASC [Concomitant]
     Indication: HYPERTENSION
     Dosage: 10 MG, UNK
     Route: 048
  3. OSNATE D [Concomitant]
     Dosage: 2000 IU, DAILY
     Route: 048
     Dates: start: 2003
  4. THYROXINE [Concomitant]
     Dosage: 50 UG, UNK
     Route: 048
  5. WARFARIN [Concomitant]
     Dosage: UNK UKN, UNK

REACTIONS (1)
  - Osteoporosis [Recovering/Resolving]
